FAERS Safety Report 8903364 (Version 2)
Quarter: 2012Q4

REPORT INFORMATION
  Report Type: 
  Country: EE (occurrence: EE)
  Receive Date: 20121113
  Receipt Date: 20121119
  Transmission Date: 20130627
  Serious: Yes (Other)
  Sender: FDA-Public Use
  Company Number: PHHY2012EE095852

PATIENT
  Age: 49 Year
  Sex: Male

DRUGS (8)
  1. ONBREZ [Suspect]
     Indication: CHRONIC OBSTRUCTIVE PULMONARY DISEASE
     Dosage: 300 ug, per day
     Dates: start: 201112, end: 20120302
  2. ATROVENT [Suspect]
     Indication: CHRONIC OBSTRUCTIVE PULMONARY DISEASE
     Dosage: UNK
     Dates: start: 201112
  3. DIGOXIN [Concomitant]
     Dosage: 0.25 mg, QD
  4. CARDACE [Concomitant]
     Dosage: 0.25 mg, QD
  5. LASIX [Concomitant]
     Dosage: 60 mg, QD
  6. SPIRIX [Concomitant]
     Dosage: 50 mg, QD
  7. TORASEMIDE [Concomitant]
     Dosage: 50 mg, QD
  8. MAREVAN [Concomitant]

REACTIONS (7)
  - Brain natriuretic peptide increased [Unknown]
  - Confusional state [Recovered/Resolved]
  - Malaise [Recovered/Resolved]
  - Anxiety [Recovered/Resolved]
  - Sleep disorder [Recovered/Resolved]
  - Dizziness [Recovered/Resolved]
  - Cough [Recovered/Resolved]
